FAERS Safety Report 16705475 (Version 1)
Quarter: 2019Q4

REPORT INFORMATION
  Report Type: Spontaneous
  Country: US (occurrence: US)
  Receive Date: 20190814
  Receipt Date: 20190814
  Transmission Date: 20200122
  Serious: No
  Sender: FDA-Public Use
  Company Number: None

PATIENT
  Age: 38 Year
  Sex: Female
  Weight: 52.65 kg

DRUGS (2)
  1. NUCALA [Suspect]
     Active Substance: MEPOLIZUMAB
     Indication: ASTHMA
     Dosage: ?          OTHER FREQUENCY: EVERY 28 DAYS;?
     Route: 030
     Dates: start: 20140804
  2. DULERA [Concomitant]
     Active Substance: FORMOTEROL FUMARATE DIHYDRATE\MOMETASONE FUROATE

REACTIONS (3)
  - Arthralgia [None]
  - Dry skin [None]
  - Alopecia [None]

NARRATIVE: CASE EVENT DATE: 20160805
